FAERS Safety Report 6927839-2 (Version None)
Quarter: 2010Q3

REPORT INFORMATION
  Report Type: 
  Country: None (occurrence: None)
  Receive Date: 20100816
  Receipt Date: 20100816
  Transmission Date: 20110219
  Serious: Yes (Other)
  Sender: FDA-Public Use
  Company Number: None

PATIENT
  Age: 37 Year
  Sex: Female
  Weight: 67.1324 kg

DRUGS (2)
  1. L-THYROXINE 150MCG ABBOTT/MEDCO [Suspect]
     Indication: HYPOTHYROIDISM
     Dosage: 150MCG EVERY OTHER DAY PO
     Route: 048
     Dates: start: 20100201, end: 20100701
  2. L-THYROXINE 125MCG ABBOTT/MEDCO [Suspect]
     Indication: HYPOTHYROIDISM
     Dosage: 125 MCG EVERY OTHER DAY PO
     Route: 048
     Dates: start: 20100201, end: 20100701

REACTIONS (5)
  - INCORRECT STORAGE OF DRUG [None]
  - PRODUCT MEASURED POTENCY ISSUE [None]
  - PRODUCT QUALITY ISSUE [None]
  - PRODUCT SUBSTITUTION ISSUE [None]
  - THYROID FUNCTION TEST ABNORMAL [None]
